FAERS Safety Report 17052182 (Version 17)
Quarter: 2022Q1

REPORT INFORMATION
  Report Type: Other
  Country: CA (occurrence: None)
  Receive Date: 20191120
  Receipt Date: 20220117
  Transmission Date: 20220423
  Serious: Yes (Other)
  Sender: FDA-Public Use
  Company Number: CA-ROCHE-1703259

PATIENT
  Age: 75 Year
  Sex: Female

DRUGS (39)
  1. RITUXAN [Suspect]
     Active Substance: RITUXIMAB
     Indication: Rheumatoid arthritis
     Route: 042
     Dates: start: 20151021, end: 20170208
  2. RITUXAN [Suspect]
     Active Substance: RITUXIMAB
     Route: 042
     Dates: start: 20180320
  3. RITUXAN [Suspect]
     Active Substance: RITUXIMAB
     Route: 042
     Dates: start: 20180228, end: 20191106
  4. RITUXAN [Suspect]
     Active Substance: RITUXIMAB
     Route: 042
     Dates: end: 20191106
  5. RITUXAN [Suspect]
     Active Substance: RITUXIMAB
     Dosage: ONE DOSE ONLY
     Route: 042
     Dates: start: 20200429, end: 20200619
  6. RITUXAN [Suspect]
     Active Substance: RITUXIMAB
     Dosage: DAY 1; 15. NO PIRS RECEIVED FROM 13-SEP-2017 UNTIL 20- MAR-2018 (BATCH/LOT FROM 31/AUG/2017
     Route: 042
     Dates: start: 20151021, end: 20170913
  7. RITUXAN [Suspect]
     Active Substance: RITUXIMAB
     Dosage: 19/JUN/2020, 16/DEC/2020: PREVIOUS RITUXAN INFUSION
     Route: 042
     Dates: start: 20201216
  8. TYLENOL [Concomitant]
     Active Substance: ACETAMINOPHEN
     Indication: Premedication
     Route: 048
     Dates: start: 20151021
  9. TYLENOL [Concomitant]
     Active Substance: ACETAMINOPHEN
     Route: 048
  10. BENADRYL [Concomitant]
     Active Substance: DIPHENHYDRAMINE HYDROCHLORIDE
     Indication: Premedication
     Route: 048
     Dates: start: 20151021
  11. SOLU-MEDROL [Concomitant]
     Active Substance: METHYLPREDNISOLONE SODIUM SUCCINATE
     Indication: Premedication
     Route: 042
     Dates: start: 20151021
  12. SOLU-MEDROL [Concomitant]
     Active Substance: METHYLPREDNISOLONE SODIUM SUCCINATE
     Route: 042
     Dates: start: 20191023
  13. SOLU-MEDROL [Concomitant]
     Active Substance: METHYLPREDNISOLONE SODIUM SUCCINATE
     Route: 042
     Dates: start: 20190502
  14. SOLU-MEDROL [Concomitant]
     Active Substance: METHYLPREDNISOLONE SODIUM SUCCINATE
     Route: 042
     Dates: start: 20191023, end: 20191023
  15. SOLU-MEDROL [Concomitant]
     Active Substance: METHYLPREDNISOLONE SODIUM SUCCINATE
     Route: 042
     Dates: start: 20191106
  16. SOLU-MEDROL [Concomitant]
     Active Substance: METHYLPREDNISOLONE SODIUM SUCCINATE
     Route: 042
     Dates: start: 20151021
  17. SOLU-MEDROL [Concomitant]
     Active Substance: METHYLPREDNISOLONE SODIUM SUCCINATE
     Route: 042
  18. METHOTREXATE [Concomitant]
     Active Substance: METHOTREXATE
     Indication: Rheumatoid arthritis
     Route: 058
     Dates: start: 2012
  19. FOLIC ACID [Concomitant]
     Active Substance: FOLIC ACID
     Indication: Product used for unknown indication
  20. HYDROCHLOROTHIAZIDE\TELMISARTAN [Concomitant]
     Active Substance: HYDROCHLOROTHIAZIDE\TELMISARTAN
  21. ZOCOR [Concomitant]
     Active Substance: SIMVASTATIN
     Indication: Product used for unknown indication
  22. CELEBREX [Concomitant]
     Active Substance: CELECOXIB
     Indication: Product used for unknown indication
  23. PREDNISONE [Concomitant]
     Active Substance: PREDNISONE
     Indication: Product used for unknown indication
  24. METHYLPREDNISOLONE [Concomitant]
     Active Substance: METHYLPREDNISOLONE
     Indication: Premedication
     Route: 042
     Dates: start: 20151021
  25. METHYLPREDNISOLONE [Concomitant]
     Active Substance: METHYLPREDNISOLONE
     Route: 042
     Dates: start: 20191023, end: 20191023
  26. METHYLPREDNISOLONE [Concomitant]
     Active Substance: METHYLPREDNISOLONE
     Route: 042
     Dates: start: 20191102
  27. METHYLPREDNISOLONE [Concomitant]
     Active Substance: METHYLPREDNISOLONE
     Route: 042
     Dates: start: 20191023, end: 20191023
  28. METHYLPREDNISOLONE [Concomitant]
     Active Substance: METHYLPREDNISOLONE
     Route: 042
     Dates: start: 20191106
  29. CALCIUM [Concomitant]
     Active Substance: CALCIUM
     Indication: Product used for unknown indication
  30. ELIQUIS [Concomitant]
     Active Substance: APIXABAN
     Indication: Arrhythmia
  31. DEXILANT [Concomitant]
     Active Substance: DEXLANSOPRAZOLE
     Indication: Arrhythmia
  32. OLMESARTAN MEDOXOMIL [Concomitant]
     Active Substance: OLMESARTAN MEDOXOMIL
  33. TYLENOL [Concomitant]
     Active Substance: ACETAMINOPHEN
  34. BISOPROLOL [Concomitant]
     Active Substance: BISOPROLOL
     Dates: start: 20181004
  35. CALCIUM [Concomitant]
     Active Substance: CALCIUM
     Indication: Product used for unknown indication
  36. HYDROCHLOROTHIAZIDE [Concomitant]
     Active Substance: HYDROCHLOROTHIAZIDE
     Indication: Product used for unknown indication
  37. ACETAMINOPHEN [Concomitant]
     Active Substance: ACETAMINOPHEN
     Indication: Premedication
     Route: 048
     Dates: start: 20151021
  38. ACETAMINOPHEN [Concomitant]
     Active Substance: ACETAMINOPHEN
     Route: 048
  39. PROLIA [Concomitant]
     Active Substance: DENOSUMAB

REACTIONS (42)
  - Arthralgia [Not Recovered/Not Resolved]
  - Postoperative wound infection [Recovered/Resolved]
  - Joint dislocation [Not Recovered/Not Resolved]
  - Syncope [Recovered/Resolved]
  - Arrhythmia [Unknown]
  - Joint swelling [Not Recovered/Not Resolved]
  - Peripheral swelling [Not Recovered/Not Resolved]
  - Dizziness [Not Recovered/Not Resolved]
  - Hypotension [Not Recovered/Not Resolved]
  - Bronchitis [Unknown]
  - Arthritis [Not Recovered/Not Resolved]
  - Therapeutic product effect decreased [Unknown]
  - Body temperature increased [Recovered/Resolved]
  - Cough [Recovered/Resolved]
  - Headache [Recovered/Resolved]
  - Pain in extremity [Unknown]
  - Disability assessment scale score increased [Unknown]
  - C-reactive protein increased [Unknown]
  - Gait disturbance [Not Recovered/Not Resolved]
  - Erythema [Recovered/Resolved]
  - Blood pressure systolic increased [Recovered/Resolved]
  - Blood pressure fluctuation [Unknown]
  - Hypertension [Unknown]
  - Dizziness [Unknown]
  - Oxygen saturation decreased [Unknown]
  - Blood pressure diastolic decreased [Unknown]
  - Intentional product use issue [Unknown]
  - Off label use [Unknown]
  - Dyspnoea [Not Recovered/Not Resolved]
  - Peripheral swelling [Unknown]
  - Pulmonary function test decreased [Unknown]
  - Infusion related reaction [Unknown]
  - Oedema peripheral [Not Recovered/Not Resolved]
  - Blood pressure diastolic abnormal [Unknown]
  - Musculoskeletal stiffness [Unknown]
  - Wound secretion [Recovered/Resolved]
  - Blood pressure systolic abnormal [Unknown]
  - Blood pressure systolic increased [Recovered/Resolved]
  - Infusion related reaction [Unknown]
  - Ill-defined disorder [Unknown]
  - Pain [Unknown]
  - Blood pressure fluctuation [Recovered/Resolved]

NARRATIVE: CASE EVENT DATE: 20151201
